FAERS Safety Report 9842701 (Version 2)
Quarter: 2014Q1

REPORT INFORMATION
  Report Type: Spontaneous
  Country: NL (occurrence: NL)
  Receive Date: 20140124
  Receipt Date: 20140203
  Transmission Date: 20141002
  Serious: Yes (Hospitalization)
  Sender: FDA-Public Use
  Company Number: NL-PFIZER INC-2014021616

PATIENT
  Age: 64 Year
  Sex: Female

DRUGS (6)
  1. RAMIPRIL [Suspect]
     Indication: MITRAL VALVE INCOMPETENCE
     Dosage: 1 DF, DAILY
     Route: 048
     Dates: start: 20131203, end: 20140109
  2. EZETIMIBE/SIMVASTATIN [Concomitant]
     Dosage: UNK
     Dates: start: 20131101
  3. PANTOPRAZOLE [Concomitant]
     Dosage: UNK
     Dates: start: 20131102
  4. ACETYLSALICYLZUUR [Concomitant]
     Dosage: UNK
     Dates: start: 20131102
  5. CLOPIDOGREL [Concomitant]
     Dosage: UNK
     Dates: start: 20131102
  6. METOPROLOL [Concomitant]
     Dosage: UNK
     Dates: start: 20131102

REACTIONS (4)
  - Fear [Recovering/Resolving]
  - Chest discomfort [Recovering/Resolving]
  - Nausea [Recovering/Resolving]
  - Cardiac disorder [Unknown]
